FAERS Safety Report 5569225-6 (Version None)
Quarter: 2007Q4

REPORT INFORMATION
  Report Type: 
  Country: None (occurrence: None)
  Receive Date: 20071220
  Receipt Date: 20070917
  Transmission Date: 20080405
  Serious: No
  Sender: FDA-Public Use
  Company Number: A0682431A

PATIENT
  Age: 67 Year
  Sex: Male

DRUGS (4)
  1. AVODART [Suspect]
     Indication: BENIGN PROSTATIC HYPERPLASIA
     Dosage: .5MG PER DAY
     Route: 048
     Dates: start: 20061201
  2. VYTORIN [Concomitant]
  3. ALLOPURINOL [Concomitant]
  4. LEVOXYL [Concomitant]

REACTIONS (5)
  - DRUG INEFFECTIVE [None]
  - LIBIDO DECREASED [None]
  - POLLAKIURIA [None]
  - SEMEN VOLUME DECREASED [None]
  - URINE FLOW DECREASED [None]
